FAERS Safety Report 10519115 (Version 2)
Quarter: 2014Q4

REPORT INFORMATION
  Report Type: Spontaneous
  Country: US (occurrence: US)
  Receive Date: 20141015
  Receipt Date: 20141015
  Transmission Date: 20150528
  Serious: Yes (Hospitalization, Other)
  Sender: FDA-Public Use
  Company Number: US-GSKJP-DK201110747002

PATIENT
  Age: 68 Year
  Sex: Male
  Weight: 85.2 kg

DRUGS (1)
  1. MELPHALAN [Suspect]
     Active Substance: MELPHALAN
     Indication: BONE MARROW TRANSPLANT
     Dosage: 200 MG/M2, SINGLE
     Route: 042
     Dates: start: 20101214, end: 20101214

REACTIONS (4)
  - Mucosal inflammation [Recovered/Resolved]
  - Enterocolitis infectious [Recovered/Resolved]
  - Febrile neutropenia [Recovered/Resolved]
  - Anaemia [Recovered/Resolved]

NARRATIVE: CASE EVENT DATE: 20101214
